FAERS Safety Report 4495005-9 (Version None)
Quarter: 2004Q4

REPORT INFORMATION
  Report Type: 
  Country: None (occurrence: None)
  Receive Date: 20041108
  Receipt Date: 20041026
  Transmission Date: 20050328
  Serious: Yes (Death, Other)
  Sender: FDA-Public Use
  Company Number: IT-JNJFOC-20041005872

PATIENT
  Sex: Male
  Weight: 63 kg

DRUGS (7)
  1. REOPRO [Suspect]
     Dosage: 4.0 ML IN 046 ML DILUENT AT 3.2 ML/H
     Route: 042
  2. REOPRO [Suspect]
     Indication: ACUTE MYOCARDIAL INFARCTION
     Route: 042
  3. RETEPLASE [Suspect]
     Indication: ACUTE MYOCARDIAL INFARCTION
     Route: 042
  4. HEPARIN [Concomitant]
     Route: 042
  5. HEPARIN [Concomitant]
     Route: 042
  6. ASPIRIN [Concomitant]
  7. BETA-BLOCKERS [Concomitant]

REACTIONS (8)
  - ACTIVATED PARTIAL THROMBOPLASTIN TIME PROLONGED [None]
  - CARDIAC ARREST [None]
  - CARDIAC FAILURE [None]
  - DRUG INTERACTION [None]
  - EPISTAXIS [None]
  - OXYGEN SATURATION DECREASED [None]
  - SHOCK [None]
  - UPPER GASTROINTESTINAL HAEMORRHAGE [None]
